FAERS Safety Report 7126722-X (Version None)
Quarter: 2010Q4

REPORT INFORMATION
  Report Type: 
  Country: None (occurrence: None)
  Receive Date: 20101129
  Receipt Date: 20101115
  Transmission Date: 20110411
  Serious: Yes (Other)
  Sender: FDA-Public Use
  Company Number: PHHY2010AU77384

PATIENT
  Sex: Female

DRUGS (6)
  1. ACLASTA [Suspect]
     Dosage: UNK
     Dates: start: 20070101
  2. PLAQUENIL [Concomitant]
  3. MIANSERIN [Concomitant]
  4. WARFARIN SODIUM [Concomitant]
     Dosage: UNK
     Dates: start: 19810101
  5. STEROIDS NOS [Concomitant]
  6. METHOTREXATE [Concomitant]

REACTIONS (7)
  - ARTHROPATHY [None]
  - C-REACTIVE PROTEIN INCREASED [None]
  - INFLAMMATION [None]
  - OSTEONECROSIS [None]
  - RED BLOOD CELL SEDIMENTATION RATE INCREASED [None]
  - SPEECH DISORDER [None]
  - SPINAL FRACTURE [None]
